FAERS Safety Report 5776071-7 (Version None)
Quarter: 2008Q2

REPORT INFORMATION
  Report Type: 
  Country: None (occurrence: None)
  Receive Date: 20080613
  Receipt Date: 20080530
  Transmission Date: 20081010
  Serious: Yes (Other)
  Sender: FDA-Public Use
  Company Number: 2008S1000190

PATIENT
  Sex: Female

DRUGS (1)
  1. ACITRETIN [Suspect]
     Indication: HYPERKERATOSIS PALMARIS AND PLANTARIS
     Dosage: 1 MG/KG; QD; PO
     Route: 048

REACTIONS (15)
  - BODY HEIGHT DECREASED [None]
  - BODY MASS INDEX DECREASED [None]
  - BONE DENSITY DECREASED [None]
  - FINGER AMPUTATION [None]
  - GAIT DISTURBANCE [None]
  - GRAFT LOSS [None]
  - HYPERKERATOSIS [None]
  - JOINT CONTRACTURE [None]
  - NECROSIS [None]
  - PAIN OF SKIN [None]
  - SKIN GRAFT [None]
  - SKIN INFECTION [None]
  - SYNDACTYLY [None]
  - TREATMENT NONCOMPLIANCE [None]
  - WEIGHT DECREASED [None]
